FAERS Safety Report 8539656-0 (Version None)
Quarter: 2012Q3

REPORT INFORMATION
  Report Type: 
  Country: None (occurrence: None)
  Receive Date: 20120726
  Receipt Date: 20110720
  Transmission Date: 20120928
  Serious: No
  Sender: FDA-Public Use
  Company Number: US-ASTRAZENECA-2008UW02251

PATIENT
  Age: 47 Year
  Sex: Female
  Weight: 63 kg

DRUGS (30)
  1. AMBIEN [Concomitant]
  2. ADIPEX-P [Concomitant]
     Dosage: 37.5 MG 1 QAM MONDAY, WEDNESDAY, FRIDAY
  3. SEROQUEL [Suspect]
     Dosage: VARIOUS INCLUDING BUT NOT LIMITED TO 300 MG
     Route: 048
     Dates: start: 20051201, end: 20060601
  4. WELLBUTRIN [Concomitant]
     Dates: start: 20060101
  5. LIPITOR [Concomitant]
  6. PROZAC [Concomitant]
  7. SERZONE [Concomitant]
  8. LISINOPRIL [Concomitant]
  9. LORAZEPAM [Concomitant]
  10. ROCEPHIN [Concomitant]
  11. XANAX [Concomitant]
  12. ATIVAN [Concomitant]
  13. PAXIL [Concomitant]
  14. VISTARIL [Concomitant]
  15. ABILIFY [Concomitant]
     Dates: start: 20040101
  16. ALBUTEROL [Concomitant]
  17. KLONOPIN [Concomitant]
  18. VALIUM [Concomitant]
  19. XENICAL [Concomitant]
  20. SEROQUEL [Suspect]
     Indication: DEPRESSION
     Dosage: 100-300 MG
     Route: 048
     Dates: start: 20050104
  21. LEXAPRO [Concomitant]
  22. NEXIUM [Concomitant]
  23. SYNTHROID [Concomitant]
  24. SEROQUEL [Suspect]
     Indication: SLEEP DISORDER
     Dosage: 100-300 MG
     Route: 048
     Dates: start: 20050104
  25. SEROQUEL [Suspect]
     Dosage: VARIOUS INCLUDING BUT NOT LIMITED TO 300 MG
     Route: 048
     Dates: start: 20051201, end: 20060601
  26. EFFEXOR [Concomitant]
  27. LASIX [Concomitant]
  28. NAPROSYN [Concomitant]
  29. PROTONIX [Concomitant]
  30. ZITHROMAX [Concomitant]

REACTIONS (8)
  - GLUCOSE TOLERANCE IMPAIRED [None]
  - HYPERGLYCAEMIA [None]
  - GAIT DISTURBANCE [None]
  - TYPE 2 DIABETES MELLITUS [None]
  - HYPERTENSION [None]
  - TOE OPERATION [None]
  - BLINDNESS [None]
  - OVERDOSE [None]
